FAERS Safety Report 15044062 (Version 1)
Quarter: 2018Q2

REPORT INFORMATION
  Report Type: Spontaneous
  Country: ES (occurrence: ES)
  Receive Date: 20180621
  Receipt Date: 20180621
  Transmission Date: 20180711
  Serious: Yes (Death, Other)
  Sender: FDA-Public Use
  Company Number: ES-BAYER-2018-114503

PATIENT
  Age: 62 Year
  Sex: Male
  Weight: 96 kg

DRUGS (4)
  1. STIVARGA [Suspect]
     Active Substance: REGORAFENIB
     Indication: HEPATOCELLULAR CARCINOMA
     Dosage: UNK
     Dates: end: 20170711
  2. RAMIPRIL. [Concomitant]
     Active Substance: RAMIPRIL
     Indication: HYPERTENSION
     Dosage: UNK
  3. STIVARGA [Suspect]
     Active Substance: REGORAFENIB
     Indication: HEPATOCELLULAR CARCINOMA
     Dosage: UNK
     Dates: start: 20160928
  4. NEXAVAR [Suspect]
     Active Substance: SORAFENIB
     Indication: HEPATOCELLULAR CARCINOMA
     Dosage: UNK
     Dates: start: 20160215

REACTIONS (15)
  - Hepatic failure [Fatal]
  - Ascites [Unknown]
  - Weight decreased [None]
  - Musculoskeletal chest pain [Unknown]
  - Neoplasm progression [Fatal]
  - Respiratory tract infection [None]
  - Rash [None]
  - Asthenia [Unknown]
  - Hepatic lesion [None]
  - Palmar-plantar erythrodysaesthesia syndrome [Unknown]
  - Hypertension [None]
  - Weight decreased [Recovering/Resolving]
  - Jaundice [Unknown]
  - Rash [Unknown]
  - Weight decreased [Recovered/Resolved]

NARRATIVE: CASE EVENT DATE: 20160329
